FAERS Safety Report 5064656-5 (Version None)
Quarter: 2006Q3

REPORT INFORMATION
  Report Type: 
  Country: None (occurrence: None)
  Receive Date: 20060728
  Receipt Date: 20060718
  Transmission Date: 20061208
  Serious: Yes (Other)
  Sender: FDA-Public Use
  Company Number: BR-ROCHE-456250

PATIENT
  Age: 51 Year
  Sex: Female

DRUGS (8)
  1. ROACUTAN [Suspect]
     Indication: ACNE
     Route: 048
     Dates: start: 20050915, end: 20060615
  2. OMEPRAZOLE [Concomitant]
     Route: 048
  3. GABAPENTIN [Concomitant]
     Route: 048
  4. ATENOLOL [Concomitant]
     Route: 048
  5. LEUCOGEN (THYMOMODULIN) [Concomitant]
     Route: 048
  6. BENERVA [Concomitant]
     Indication: VITAMIN SUPPLEMENTATION
  7. CENTRUM [Concomitant]
     Indication: VITAMIN SUPPLEMENTATION
  8. CALTRATE [Concomitant]

REACTIONS (3)
  - BLOOD ALKALINE PHOSPHATASE INCREASED [None]
  - MYALGIA [None]
  - MYOSITIS OSSIFICANS [None]
